FAERS Safety Report 19013387 (Version 1)
Quarter: 2021Q1

REPORT INFORMATION
  Report Type: Spontaneous
  Country: KR (occurrence: KR)
  Receive Date: 20210316
  Receipt Date: 20210316
  Transmission Date: 20210420
  Serious: Yes (Hospitalization)
  Sender: FDA-Public Use
  Company Number: KR-AMNEAL PHARMACEUTICALS-2021-AMRX-00871

PATIENT
  Age: 49 Year
  Sex: Male

DRUGS (2)
  1. LIDOCAINE. [Suspect]
     Active Substance: LIDOCAINE
     Indication: SPINAL OSTEOARTHRITIS
     Dosage: 0.3 MILLILITER
     Route: 008
  2. HYALURONIDASE [Suspect]
     Active Substance: HYALURONIDASE
     Indication: SPINAL OSTEOARTHRITIS
     Dosage: 1 MILLILITER
     Route: 008

REACTIONS (1)
  - Meningitis chemical [Recovered/Resolved]
